FAERS Safety Report 4805768-8 (Version None)
Quarter: 2005Q4

REPORT INFORMATION
  Report Type: 
  Country: None (occurrence: None)
  Receive Date: 20051018
  Receipt Date: 20051005
  Transmission Date: 20060501
  Serious: Yes (Hospitalization)
  Sender: FDA-Public Use
  Company Number: 218131

PATIENT
  Age: 68 Year
  Sex: Male
  Weight: 67.4 kg

DRUGS (11)
  1. AVASTIN [Suspect]
     Indication: COLORECTAL CANCER METASTATIC
     Dosage: 335 MG, Q2W, INTRAVENOUS
     Route: 042
     Dates: start: 20040914
  2. IRINOTECAN (IRINOTECAN) [Suspect]
     Indication: COLORECTAL CANCER METASTATIC
     Dosage: 208 MG, Q2W, INTRAVENOUS
     Route: 042
     Dates: start: 20050914
  3. FLUOROURACIL [Suspect]
     Indication: COLORECTAL CANCER METASTATIC
     Dosage: 3114 MG, Q12W, INTRAVENOUS
     Route: 042
     Dates: start: 20050914
  4. LEUCOVORIN (LEVCOVORIN CALCIUM) [Suspect]
     Indication: COLORECTAL CANCER METASTATIC
     Dosage: 346 MG, Q2W, INTRAVENOUS
     Route: 042
     Dates: start: 20050914
  5. GLUCOVANCE [Concomitant]
  6. AVANDIA [Concomitant]
  7. TESSALSON PERLESS (VENZONATATE) [Concomitant]
  8. IMODIUM [Concomitant]
  9. SYNTHROID [Concomitant]
  10. MORPHINE [Concomitant]
  11. LISINOPRIL [Concomitant]

REACTIONS (10)
  - ANAEMIA [None]
  - DYSPNOEA [None]
  - FATIGUE [None]
  - FEBRILE NEUTROPENIA [None]
  - FUNGAL INFECTION [None]
  - LYMPHOCYTE COUNT INCREASED [None]
  - OEDEMA PERIPHERAL [None]
  - ORAL INTAKE REDUCED [None]
  - PNEUMONIA [None]
  - WHITE BLOOD CELL COUNT DECREASED [None]
